FAERS Safety Report 4350565-3 (Version None)
Quarter: 2004Q2

REPORT INFORMATION
  Report Type: 
  Country: None (occurrence: None)
  Receive Date: 20040427
  Receipt Date: 20040420
  Transmission Date: 20050107
  Serious: No
  Sender: FDA-Public Use
  Company Number: 2004UW02496

PATIENT
  Age: 25 Year
  Sex: Male
  Weight: 75.7507 kg

DRUGS (11)
  1. SEROQUEL [Suspect]
     Indication: BIPOLAR DISORDER
     Dosage: UNSPECIFIED LOWER DOSES OF SEROQUEL
     Dates: start: 20020419
  2. SEROQUEL [Suspect]
     Indication: BIPOLAR DISORDER
     Dosage: 500 MG DAILY PO
     Route: 048
     Dates: start: 20030520
  3. SEROQUEL [Suspect]
     Indication: BIPOLAR DISORDER
     Dosage: 700 MG DAILY PO
     Route: 048
     Dates: start: 20031209
  4. TEGRETOL [Suspect]
     Indication: BIPOLAR DISORDER
     Dosage: 800 MG DAILY
     Dates: start: 20030518
  5. TEGRETOL [Suspect]
     Indication: CONVULSION
     Dosage: 800 MG DAILY
     Dates: start: 20030518
  6. LITHIUM CITRATE [Concomitant]
  7. CHLORPROMAZINE [Concomitant]
  8. LEVOTHYROXINE [Concomitant]
  9. MULTI-VITAMIN [Concomitant]
  10. PYRIDOXINE [Concomitant]
  11. VITAMIN E [Concomitant]

REACTIONS (2)
  - ANTICONVULSANT DRUG LEVEL DECREASED [None]
  - DRUG INTERACTION [None]
